FAERS Safety Report 12724303 (Version 1)
Quarter: 2016Q3

REPORT INFORMATION
  Report Type: Spontaneous
  Country: US (occurrence: US)
  Receive Date: 20160908
  Receipt Date: 20160908
  Transmission Date: 20161109
  Serious: No
  Sender: FDA-Public Use
  Company Number: US-FERRINGPH-2015FE02376

PATIENT
  Sex: Female

DRUGS (1)
  1. PREPOPIK [Suspect]
     Active Substance: ANHYDROUS CITRIC ACID\MAGNESIUM OXIDE\SODIUM PICOSULFATE
     Indication: BOWEL PREPARATION
     Dosage: SPLIT-DOSE REGIMEN
     Route: 048

REACTIONS (10)
  - Nausea [Unknown]
  - Abdominal distension [Unknown]
  - Diarrhoea [Unknown]
  - Product reconstitution issue [Unknown]
  - Lethargy [Unknown]
  - Drug ineffective [Unknown]
  - Dizziness [Unknown]
  - Vomiting [Unknown]
  - Retching [Unknown]
  - Headache [Unknown]
